FAERS Safety Report 24227075 (Version 1)
Quarter: 2024Q3

REPORT INFORMATION
  Report Type: Spontaneous
  Country: US (occurrence: None)
  Receive Date: 20240819
  Receipt Date: 20240819
  Transmission Date: 20241017
  Serious: Yes (unspecified)
  Sender: Public
  Company Number: None

PATIENT
  Age: 37 Year
  Sex: Male
  Weight: 101.25 kg

DRUGS (3)
  1. ZEPBOUND [Suspect]
     Active Substance: TIRZEPATIDE
     Dosage: OTHER QUANTITY : 1 INJECTION(S);?OTHER FREQUENCY : 1/WEEK;?
     Route: 058
     Dates: start: 20240521, end: 20240701
  2. METOPROLOL [Concomitant]
     Active Substance: METOPROLOL
  3. ACETYLCYSTEINE [Concomitant]
     Active Substance: ACETYLCYSTEINE

REACTIONS (6)
  - Muscular weakness [None]
  - Fatigue [None]
  - Hypoglycaemia [None]
  - Panic attack [None]
  - Impaired work ability [None]
  - Blood creatine phosphokinase increased [None]

NARRATIVE: CASE EVENT DATE: 20240701
